FAERS Safety Report 7381015-0 (Version None)
Quarter: 2011Q1

REPORT INFORMATION
  Report Type: 
  Country: None (occurrence: None)
  Receive Date: 20110329
  Receipt Date: 20100315
  Transmission Date: 20110831
  Serious: No
  Sender: FDA-Public Use
  Company Number: US-AMGEN-KDL399482

PATIENT
  Sex: Male

DRUGS (3)
  1. SENSIPAR [Suspect]
     Indication: HYPERPARATHYROIDISM SECONDARY
     Dosage: UNK UNK, UNK
  2. SEVELAMER [Concomitant]
     Dosage: UNK UNK, UNK
  3. LANTHANUM CARBONATE [Concomitant]
     Dosage: UNK UNK, UNK

REACTIONS (3)
  - DIARRHOEA [None]
  - HAEMATOCHEZIA [None]
  - HAEMORRHOIDS [None]
